FAERS Safety Report 23639446 (Version 5)
Quarter: 2025Q1

REPORT INFORMATION
  Report Type: Report from Study
  Country: US (occurrence: US)
  Receive Date: 20240316
  Receipt Date: 20250220
  Transmission Date: 20250409
  Serious: Yes (Other)
  Sender: ROCHE
  Company Number: US-ROCHE-3525182

PATIENT
  Age: 53 Year
  Sex: Female

DRUGS (17)
  1. RITUXAN [Suspect]
     Active Substance: RITUXIMAB
     Indication: Rheumatoid arthritis
     Dosage: EVERY 7 DAY(S) FOR 4 WEEKS?ON 20/JUL/2023, 03/AUG/2023, 10/AUG/2023, OCT/2023, 25/MAY/2024
     Route: 040
     Dates: start: 20230713
  2. RITUXAN [Suspect]
     Active Substance: RITUXIMAB
     Route: 065
     Dates: start: 20240525
  3. ACTEMRA [Suspect]
     Active Substance: TOCILIZUMAB
     Indication: Product used for unknown indication
     Route: 058
  4. ACTEMRA [Suspect]
     Active Substance: TOCILIZUMAB
     Indication: Product used for unknown indication
     Route: 040
  5. LORATADINE [Concomitant]
     Active Substance: LORATADINE
  6. LORATADINE [Concomitant]
     Active Substance: LORATADINE
  7. SOLU-MEDROL [Concomitant]
     Active Substance: METHYLPREDNISOLONE SODIUM SUCCINATE
     Route: 040
  8. SOLU-MEDROL [Concomitant]
     Active Substance: METHYLPREDNISOLONE SODIUM SUCCINATE
     Route: 040
  9. PERCOCET [Concomitant]
     Active Substance: ACETAMINOPHEN\OXYCODONE HYDROCHLORIDE
  10. VITAMIN D3 [Concomitant]
     Active Substance: CHOLECALCIFEROL
  11. COENZYME Q10 [Concomitant]
     Active Substance: DIETARY SUPPLEMENT\UBIDECARENONE
  12. MAGNESIUM MALATE [Concomitant]
     Active Substance: MAGNESIUM MALATE
  13. TESTOSTERONE [Concomitant]
     Active Substance: TESTOSTERONE
  14. PROGESTERONE [Concomitant]
     Active Substance: PROGESTERONE
  15. VITAMIN E-400 [Concomitant]
  16. FISH OIL [Concomitant]
     Active Substance: FISH OIL
  17. CLONIDINE [Concomitant]
     Active Substance: CLONIDINE

REACTIONS (7)
  - Breast cancer [Recovered/Resolved]
  - Off label use [Unknown]
  - Myalgia [Unknown]
  - Arthralgia [Unknown]
  - Fatigue [Unknown]
  - Pain in extremity [Unknown]
  - Dermatitis allergic [Unknown]
